FAERS Safety Report 6342937-2 (Version None)
Quarter: 2009Q3

REPORT INFORMATION
  Report Type: 
  Country: None (occurrence: None)
  Receive Date: 20090908
  Receipt Date: 20090903
  Transmission Date: 20100115
  Serious: Yes (Hospitalization)
  Sender: FDA-Public Use
  Company Number: US-BRISTOL-MYERS SQUIBB COMPANY-14766620

PATIENT
  Age: 60 Year
  Sex: Female
  Weight: 63 kg

DRUGS (7)
  1. ABILIFY [Suspect]
     Indication: MAJOR DEPRESSION
  2. CYMBALTA [Concomitant]
  3. TARKA [Concomitant]
  4. ATENOLOL [Concomitant]
  5. BENICAR [Concomitant]
  6. TEGRETOL [Concomitant]
  7. ALPRAZOLAM [Concomitant]

REACTIONS (1)
  - HALLUCINATIONS, MIXED [None]
